FAERS Safety Report 8188646-9 (Version None)
Quarter: 2012Q1

REPORT INFORMATION
  Report Type: 
  Country: None (occurrence: None)
  Receive Date: 20120306
  Receipt Date: 20120223
  Transmission Date: 20120608
  Serious: Yes (Disabling, Other)
  Sender: FDA-Public Use
  Company Number: US-ROCHE-384576

PATIENT
  Sex: Male
  Weight: 76.2 kg

DRUGS (3)
  1. ACCUTANE [Suspect]
     Dosage: STILL RECEIVING TREATMENT ON 26 JUN 2000
     Route: 048
  2. ACCUTANE [Suspect]
     Indication: ACNE
     Route: 048
     Dates: start: 19880101, end: 19910101
  3. ACCUTANE [Suspect]
     Route: 048
     Dates: start: 19940101, end: 19970101

REACTIONS (47)
  - ANAL FISSURE [None]
  - ANAL FISTULA [None]
  - CHRONIC FATIGUE SYNDROME [None]
  - RECTAL HAEMORRHAGE [None]
  - HAEMATOCHEZIA [None]
  - VOMITING [None]
  - NIGHT SWEATS [None]
  - PAIN [None]
  - POLYP [None]
  - ABDOMINAL PAIN [None]
  - LETHARGY [None]
  - MUCOUS STOOLS [None]
  - WEIGHT DECREASED [None]
  - COLITIS ULCERATIVE [None]
  - ABDOMINAL DISTENSION [None]
  - GASTROINTESTINAL DISORDER [None]
  - MOOD SWINGS [None]
  - INSOMNIA [None]
  - NAUSEA [None]
  - FREQUENT BOWEL MOVEMENTS [None]
  - ERYTHEMA [None]
  - FATIGUE [None]
  - INTERNAL INJURY [None]
  - PROCTALGIA [None]
  - RECTAL FISSURE [None]
  - DECREASED APPETITE [None]
  - OEDEMA PERIPHERAL [None]
  - DEPRESSION [None]
  - BIPOLAR DISORDER [None]
  - INFLAMMATORY BOWEL DISEASE [None]
  - ASTHENIA [None]
  - ANORECTAL DISORDER [None]
  - INTESTINAL HAEMORRHAGE [None]
  - CROHN'S DISEASE [None]
  - OEDEMA [None]
  - ARTHRALGIA [None]
  - ANXIETY [None]
  - STRESS [None]
  - DIARRHOEA [None]
  - RASH [None]
  - CATARACT [None]
  - DYSPEPSIA [None]
  - HAEMORRHOIDS [None]
  - SUICIDAL IDEATION [None]
  - VISION BLURRED [None]
  - SELF INJURIOUS BEHAVIOUR [None]
  - ARTHRITIS [None]
